FAERS Safety Report 16320971 (Version 1)
Quarter: 2019Q2

REPORT INFORMATION
  Report Type: Spontaneous
  Country: US (occurrence: US)
  Receive Date: 20190516
  Receipt Date: 20190516
  Transmission Date: 20190711
  Serious: Yes (Other)
  Sender: FDA-Public Use
  Company Number: PHHY2019US107847

PATIENT
  Age: 35 Year
  Sex: Male

DRUGS (1)
  1. CEFTRIAXONE. [Suspect]
     Active Substance: CEFTRIAXONE
     Indication: ENDOCARDITIS STAPHYLOCOCCAL
     Dosage: UNK
     Route: 065

REACTIONS (6)
  - Purpura [Recovering/Resolving]
  - Chronic pigmented purpura [Recovering/Resolving]
  - Blister [Recovering/Resolving]
  - Rash [Recovering/Resolving]
  - Arthralgia [Recovering/Resolving]
  - Hypersensitivity vasculitis [Recovering/Resolving]
